FAERS Safety Report 20014285 (Version 2)
Quarter: 2021Q4

REPORT INFORMATION
  Report Type: Spontaneous
  Country: SG (occurrence: SG)
  Receive Date: 20211029
  Receipt Date: 20211103
  Transmission Date: 20220304
  Serious: Yes (Other)
  Sender: FDA-Public Use
  Company Number: SG-BAYER-2021A235547

PATIENT

DRUGS (1)
  1. EYLEA [Suspect]
     Active Substance: AFLIBERCEPT
     Indication: Product used for unknown indication
     Dosage: TOTAL DOSE AND LAST DOSE PRIOR THE EVENT WERE NOT REPORTED

REACTIONS (2)
  - Retinal haemorrhage [Unknown]
  - Serous retinal detachment [Unknown]
